FAERS Safety Report 23362899 (Version 1)
Quarter: 2024Q1

REPORT INFORMATION
  Report Type: Spontaneous
  Country: US (occurrence: None)
  Receive Date: 20240103
  Receipt Date: 20240103
  Transmission Date: 20240410
  Serious: Yes (Other)
  Sender: FDA-Public Use
  Company Number: None

PATIENT
  Sex: Male

DRUGS (11)
  1. MYCOPHENOLATE MOFETIL [Suspect]
     Active Substance: MYCOPHENOLATE MOFETIL
     Indication: Liver transplant
     Dosage: 200 MG/ML ORAL??TAKE 0.8 ML BY MOUTH TWO TIMES A DAY. DISCARD 60 DAYS AFTER RECONSTITUTION
     Route: 048
     Dates: start: 20200117
  2. ACYCLOVIR [Concomitant]
     Active Substance: ACYCLOVIR
  3. AMLODIPINE [Concomitant]
     Active Substance: AMLODIPINE BESYLATE
  4. ASPIRIN LOW [Concomitant]
  5. FAMOTIDINE [Concomitant]
     Active Substance: FAMOTIDINE
  6. MAGNESIUM CARBONATE [Concomitant]
     Active Substance: MAGNESIUM CARBONATE
  7. NYSTATIN [Concomitant]
     Active Substance: NYSTATIN
  8. PREDNISOLONE [Concomitant]
     Active Substance: PREDNISOLONE
  9. SAMOLINIC [Concomitant]
  10. SULFAMETHOX POW MICRO [Concomitant]
  11. TACROLIMUS [Concomitant]
     Active Substance: TACROLIMUS

REACTIONS (1)
  - Dyspnoea [None]
